FAERS Safety Report 15180818 (Version 1)
Quarter: 2018Q3

REPORT INFORMATION
  Report Type: Spontaneous
  Country: US (occurrence: US)
  Receive Date: 20180623
  Receipt Date: 20180623
  Transmission Date: 20181010
  Serious: No
  Sender: FDA-Public Use
  Company Number: None

PATIENT
  Age: 13 Year
  Sex: Male
  Weight: 45 kg

DRUGS (4)
  1. MONTELUKAST [Concomitant]
     Active Substance: MONTELUKAST SODIUM
  2. CLARITIN [Concomitant]
     Active Substance: LORATADINE
  3. FLUTICASONE PROPIONATE NASAL SPRAY 50MCG [Suspect]
     Active Substance: FLUTICASONE PROPIONATE
     Indication: HYPERSENSITIVITY
     Dosage: QUANTITY:2 SPRAY(S);?
     Route: 045
     Dates: start: 20180301, end: 20180621
  4. TEENS CHEWABLE VITAMINS [Concomitant]

REACTIONS (1)
  - Epistaxis [None]

NARRATIVE: CASE EVENT DATE: 20180501
